FAERS Safety Report 14499009 (Version 3)
Quarter: 2018Q4

REPORT INFORMATION
  Report Type: Spontaneous
  Country: DE (occurrence: DE)
  Receive Date: 20180207
  Receipt Date: 20181019
  Transmission Date: 20190204
  Serious: Yes (Hospitalization)
  Sender: FDA-Public Use
  Company Number: DE-MYLANLABS-2018M1007492

PATIENT
  Age: 89 Year
  Sex: Male

DRUGS (3)
  1. ENABETA COMP [Suspect]
     Active Substance: ENALAPRIL MALEATE\HYDROCHLOROTHIAZIDE
     Indication: HYPERTENSION
     Dosage: 1 DF, QD (PRESCRIBED 1/2 TABLET IN THE MORNING AND ALSO 1/2 TABLET IN THE EVENINGS IF BLOOD PRESSURE
     Route: 048
     Dates: start: 20180103
  2. ENABETA COMP [Suspect]
     Active Substance: ENALAPRIL MALEATE\HYDROCHLOROTHIAZIDE
     Dosage: 1 DF, QD (FOR AT LEAST 20 YEARS)
     Route: 048
  3. AMLODIPINE [Suspect]
     Active Substance: AMLODIPINE BESYLATE
     Indication: HYPERTENSION
     Dosage: 1 DF, QD
     Route: 065

REACTIONS (3)
  - Blood pressure decreased [Unknown]
  - Incorrect dose administered [Unknown]
  - Loss of consciousness [Unknown]

NARRATIVE: CASE EVENT DATE: 201712
